FAERS Safety Report 8849267 (Version 2)
Quarter: 2013Q1

REPORT INFORMATION
  Report Type: Spontaneous
  Country: US (occurrence: US)
  Receive Date: 20121019
  Receipt Date: 20130104
  Transmission Date: 20140127
  Serious: Yes (Other)
  Sender: FDA-Public Use
  Company Number: US-BAYER-2012-106385

PATIENT
  Age: 16 Year
  Sex: Female

DRUGS (4)
  1. YASMIN [Suspect]
  2. ALBUTEROL [Concomitant]
     Dosage: 90 ?G, UNK
     Dates: start: 20051114, end: 20051229
  3. ALBUTEROL [Concomitant]
     Dosage: 0.83 MG/ML, UNK
     Dates: start: 20051230, end: 20060312
  4. ADVAIR DISKUS [Concomitant]
     Dosage: 100/50
     Dates: start: 20051114, end: 20051229

REACTIONS (1)
  - Thrombosis [Recovered/Resolved]
